FAERS Safety Report 18174462 (Version 1)
Quarter: 2020Q3

REPORT INFORMATION
  Report Type: Spontaneous
  Country: US (occurrence: US)
  Receive Date: 20200819
  Receipt Date: 20200819
  Transmission Date: 20201103
  Serious: No
  Sender: FDA-Public Use
  Company Number: None

PATIENT
  Age: 72 Year
  Sex: Female

DRUGS (1)
  1. TACROLIMUS CAP 1 MG [Suspect]
     Active Substance: TACROLIMUS
     Dosage: ?          OTHER DOSE:1;?
     Route: 048
     Dates: start: 201507

REACTIONS (3)
  - Drug ineffective [None]
  - Renal tubular necrosis [None]
  - Dialysis [None]

NARRATIVE: CASE EVENT DATE: 20200819
